FAERS Safety Report 5661159-1 (Version None)
Quarter: 2008Q1

REPORT INFORMATION
  Report Type: 
  Country: None (occurrence: None)
  Receive Date: 20080305
  Receipt Date: 20080225
  Transmission Date: 20080703
  Serious: Yes (Other)
  Sender: FDA-Public Use
  Company Number: 2008004707

PATIENT
  Age: 16 Year
  Sex: Female

DRUGS (1)
  1. LISTERINE (MENTHOL, METHYL SALICYLATE, EUCALYPTOL, THYMOL) [Suspect]
     Indication: INTENTIONAL SELF-INJURY
     Dosage: 3 CUPS FULL, ORAL
     Route: 048
     Dates: start: 20080225, end: 20080225

REACTIONS (5)
  - ERYTHEMA [None]
  - HEADACHE [None]
  - INTENTIONAL DRUG MISUSE [None]
  - INTENTIONAL SELF-INJURY [None]
  - NAUSEA [None]
